FAERS Safety Report 9002365 (Version 1)
Quarter: 2012Q4

REPORT INFORMATION
  Report Type: Spontaneous
  Country: US (occurrence: None)
  Receive Date: 20121121
  Receipt Date: 20121121
  Transmission Date: 20130627
  Serious: Yes (Hospitalization)
  Sender: FDA-Public Use
  Company Number: 142081

PATIENT
  Age: 58 Year
  Sex: Female
  Weight: 48 kg

DRUGS (2)
  1. CYTARABINE [Suspect]
     Indication: ACUTE MYELOID LEUKEMIA
     Dosage: 296 mg/ UID/ QD/ IV
     Dates: start: 20120811, end: 20120817
  2. DAUNORUBICIN HCL [Suspect]
     Indication: ACUTE MYELOID LEUKEMIA
     Dosage: 89 mg/ UID/ QD/ IV
     Dates: start: 20120811, end: 20120813

REACTIONS (2)
  - Small intestinal obstruction [None]
  - Neutropenia [None]
